FAERS Safety Report 4684464-4 (Version None)
Quarter: 2005Q2

REPORT INFORMATION
  Report Type: 
  Country: None (occurrence: None)
  Receive Date: 20050531
  Receipt Date: 20041130
  Transmission Date: 20051028
  Serious: Yes (Other)
  Sender: FDA-Public Use
  Company Number: USA040978166

PATIENT
  Age: 29 Year
  Sex: Male

DRUGS (4)
  1. ZYPREXA [Suspect]
     Indication: SCHIZOAFFECTIVE DISORDER
     Dosage: 20 MG DAY
     Route: 048
  2. TRAZODONE HCL [Concomitant]
  3. NEURONTIN [Concomitant]
  4. ZOLOFT [Concomitant]

REACTIONS (2)
  - HUNGER [None]
  - WEIGHT INCREASED [None]
